FAERS Safety Report 8412899-2 (Version None)
Quarter: 2012Q2

REPORT INFORMATION
  Report Type: 
  Country: None (occurrence: None)
  Receive Date: 20120605
  Receipt Date: 20120525
  Transmission Date: 20120825
  Serious: No
  Sender: FDA-Public Use
  Company Number: US-AMGEN-USASP2012031443

PATIENT
  Age: 43 Year
  Sex: Female

DRUGS (3)
  1. ENBREL [Suspect]
     Indication: RHEUMATOID ARTHRITIS
     Dosage: 50 MG, UNK
     Route: 058
     Dates: start: 20060424
  2. ENBREL [Suspect]
     Indication: PSORIASIS
  3. ENBREL [Suspect]
     Indication: PSORIATIC ARTHROPATHY

REACTIONS (19)
  - PAIN IN EXTREMITY [None]
  - FATIGUE [None]
  - WEIGHT INCREASED [None]
  - INFLAMMATION [None]
  - ABDOMINAL PAIN [None]
  - ARTHRALGIA [None]
  - INJECTION SITE SWELLING [None]
  - INJECTION SITE ERYTHEMA [None]
  - MOBILITY DECREASED [None]
  - RED BLOOD CELL SEDIMENTATION RATE INCREASED [None]
  - PAIN [None]
  - SINUSITIS [None]
  - INJECTION SITE PRURITUS [None]
  - GAIT DISTURBANCE [None]
  - NAUSEA [None]
  - INJECTION SITE PAIN [None]
  - UPPER RESPIRATORY TRACT INFECTION [None]
  - DIARRHOEA [None]
  - INJECTION SITE WARMTH [None]
